FAERS Safety Report 7320564-8 (Version None)
Quarter: 2011Q1

REPORT INFORMATION
  Report Type: 
  Country: None (occurrence: None)
  Receive Date: 20110228
  Receipt Date: 20110217
  Transmission Date: 20110831
  Serious: Yes (Other)
  Sender: FDA-Public Use
  Company Number: JP-AMGEN-JPNCT2011005553

PATIENT
  Age: 51 Year
  Sex: Female
  Weight: 39 kg

DRUGS (17)
  1. OXALIPLATIN [Suspect]
     Indication: COLORECTAL CANCER
     Route: 041
     Dates: start: 20101109, end: 20110120
  2. CORTICOSTEROIDS [Concomitant]
     Indication: PROPHYLAXIS
     Dosage: UNK
     Route: 065
  3. GRANISETRON HCL [Concomitant]
     Dosage: UNK
     Route: 042
  4. SENNOSIDE                          /00571901/ [Concomitant]
     Route: 048
  5. PANITUMUMAB [Suspect]
     Indication: COLORECTAL CANCER
     Dosage: 6 MG/KG, Q2WK
     Route: 041
     Dates: start: 20101109
  6. MINOCYCLINE HYDROCHLORIDE [Concomitant]
     Dosage: UNK
     Route: 048
  7. KENALOG [Concomitant]
     Dosage: UNK
     Route: 049
  8. FLUOROURACIL [Suspect]
     Route: 041
     Dates: start: 20101109, end: 20110120
  9. FLUOROURACIL [Suspect]
     Indication: COLORECTAL CANCER
     Route: 040
     Dates: start: 20101109, end: 20110120
  10. CALCICOL [Concomitant]
     Dosage: UNK
     Route: 042
  11. FERROMIA                           /00023516/ [Concomitant]
     Dosage: UNK
     Route: 048
  12. LEUCOVORIN [Suspect]
     Indication: COLORECTAL CANCER
     Route: 041
     Dates: start: 20101109, end: 20110120
  13. DEXART [Concomitant]
     Dosage: UNK
     Route: 042
  14. MAGMITT [Concomitant]
     Route: 048
  15. ANTIHISTAMINES [Concomitant]
     Indication: PROPHYLAXIS
     Dosage: UNK
     Route: 065
  16. MAGNESIUM SULFATE [Concomitant]
     Dosage: UNK
     Route: 042
  17. HIRUDOID                           /00723701/ [Concomitant]
     Route: 062

REACTIONS (3)
  - WHITE BLOOD CELL COUNT DECREASED [None]
  - DERMATITIS ACNEIFORM [None]
  - STOMATITIS [None]
